FAERS Safety Report 8506453-1 (Version None)
Quarter: 2012Q3

REPORT INFORMATION
  Report Type: 
  Country: None (occurrence: None)
  Receive Date: 20120706
  Receipt Date: 20120706
  Transmission Date: 20120928
  Serious: Yes (Other)
  Sender: FDA-Public Use
  Company Number: None

PATIENT
  Sex: Female
  Weight: 83.4619 kg

DRUGS (2)
  1. BYETTA [Suspect]
     Indication: DIABETES MELLITUS
     Dosage: 5MCG TWICE DAILY SQ
     Route: 058
     Dates: start: 20120229, end: 20120402
  2. BYETTA [Suspect]
     Indication: DIABETES MELLITUS
     Dosage: 10 MCG TWICE DAILY SQ
     Route: 058
     Dates: start: 20120402, end: 20120425

REACTIONS (7)
  - HYPOTENSION [None]
  - BLOOD POTASSIUM INCREASED [None]
  - FEELING ABNORMAL [None]
  - TACHYCARDIA [None]
  - RENAL IMPAIRMENT [None]
  - BLOOD UREA INCREASED [None]
  - BLOOD CREATINE INCREASED [None]
